FAERS Safety Report 21772314 (Version 2)
Quarter: 2023Q1

REPORT INFORMATION
  Report Type: Report from Study
  Country: US (occurrence: US)
  Receive Date: 20221223
  Receipt Date: 20230124
  Transmission Date: 20230418
  Serious: Yes (Other)
  Sender: FDA-Public Use
  Company Number: US-ABBVIE-4210118

PATIENT
  Sex: Female

DRUGS (1)
  1. HUMIRA [Suspect]
     Active Substance: ADALIMUMAB
     Indication: Uveitis
     Dosage: CITRATE FREE?40 MILLIGRAM
     Route: 058

REACTIONS (3)
  - Vogt-Koyanagi-Harada disease [Not Recovered/Not Resolved]
  - Immunodeficiency [Unknown]
  - Illness [Unknown]
